FAERS Safety Report 14641835 (Version 1)
Quarter: 2018Q1

REPORT INFORMATION
  Report Type: Spontaneous
  Country: US (occurrence: US)
  Receive Date: 20180315
  Receipt Date: 20180315
  Transmission Date: 20180509
  Serious: Yes (Other)
  Sender: FDA-Public Use
  Company Number: None

PATIENT
  Sex: Female

DRUGS (4)
  1. FIBER [Concomitant]
     Active Substance: PSYLLIUM HUSK
  2. CENTRUM [Concomitant]
     Active Substance: VITAMINS
  3. GILENYA [Suspect]
     Active Substance: FINGOLIMOD HYDROCHLORIDE
     Indication: MULTIPLE SCLEROSIS
     Route: 048
     Dates: start: 20120210
  4. DETROL LA [Concomitant]
     Active Substance: TOLTERODINE TARTRATE

REACTIONS (2)
  - Breast cancer [None]
  - Contraindication to medical treatment [None]
